FAERS Safety Report 6426605-4 (Version None)
Quarter: 2009Q4

REPORT INFORMATION
  Report Type: 
  Country: None (occurrence: None)
  Receive Date: 20091016
  Receipt Date: 20090212
  Transmission Date: 20100525
  Serious: Yes (Hospitalization, Other)
  Sender: FDA-Public Use
  Company Number: 56748

PATIENT
  Age: 70 Year
  Sex: Female

DRUGS (1)
  1. LEUCOVORIN CALCIUM [Suspect]
     Indication: NEOPLASM
     Dosage: IV
     Route: 042
     Dates: start: 20090109

REACTIONS (2)
  - DIARRHOEA [None]
  - NEUTROPENIA [None]
